FAERS Safety Report 25328694 (Version 1)
Quarter: 2025Q2

REPORT INFORMATION
  Report Type: Spontaneous
  Country: RU (occurrence: RU)
  Receive Date: 20250519
  Receipt Date: 20250519
  Transmission Date: 20250717
  Serious: Yes (Death, Other)
  Sender: JOHNSON AND JOHNSON
  Company Number: None

PATIENT
  Age: 72 Year
  Sex: Female
  Weight: 54 kg

DRUGS (10)
  1. XARELTO [Suspect]
     Active Substance: RIVAROXABAN
     Indication: Ischaemic stroke
     Route: 048
     Dates: start: 20250425, end: 20250430
  2. ASPIRIN [Suspect]
     Active Substance: ASPIRIN
     Indication: Ischaemic stroke
     Route: 048
     Dates: start: 20250428, end: 20250430
  3. HEPARIN SODIUM [Suspect]
     Active Substance: HEPARIN SODIUM
     Indication: Ischaemic stroke
     Route: 058
     Dates: start: 20250425, end: 20250430
  4. CEFTRIAXONE [Concomitant]
     Active Substance: CEFTRIAXONE
     Indication: Haematoma
     Dosage: 2 G, QD
     Dates: start: 20250425, end: 20250429
  5. CEFTRIAXONE [Concomitant]
     Active Substance: CEFTRIAXONE
  6. CITICOLINE [Concomitant]
     Active Substance: CITICOLINE
     Indication: Ischaemic stroke
     Dosage: 1000 MG, QD
     Dates: start: 20250424, end: 20250430
  7. METOPROLOL [Concomitant]
     Active Substance: METOPROLOL
     Indication: Myocardial ischaemia
     Dosage: 25 MG, BID
     Route: 048
     Dates: start: 20250425, end: 20250430
  8. OMEPRAZOLE [Concomitant]
     Active Substance: OMEPRAZOLE
     Indication: Product used for unknown indication
     Dosage: 20 MG, QD
     Dates: start: 20250425, end: 20250430
  9. ASPIRIN [Concomitant]
     Active Substance: ASPIRIN
     Indication: Product used for unknown indication
     Dosage: 100 MG, QD
     Dates: start: 20250425, end: 20250428
  10. HEPARIN [Concomitant]
     Active Substance: HEPARIN SODIUM
     Indication: Product used for unknown indication
     Route: 058
     Dates: start: 20250428, end: 20250430

REACTIONS (14)
  - Intestinal haemorrhage [Fatal]
  - Hypovolaemic shock [Fatal]
  - Haemorrhagic disorder [Fatal]
  - Peripheral vein thrombosis [Unknown]
  - Thrombophlebitis [Unknown]
  - General physical health deterioration [Unknown]
  - Asthenia [Unknown]
  - Blood pressure immeasurable [Unknown]
  - Respiratory rate increased [Unknown]
  - Heart rate irregular [Unknown]
  - Condition aggravated [Unknown]
  - Haematoma [Unknown]
  - Anaemia [Unknown]
  - Goitre [Unknown]

NARRATIVE: CASE EVENT DATE: 20250430
